FAERS Safety Report 11473624 (Version 1)
Quarter: 2015Q3

REPORT INFORMATION
  Report Type: Spontaneous
  Country: US (occurrence: None)
  Receive Date: 20150908
  Receipt Date: 20150908
  Transmission Date: 20151125
  Serious: Yes (Other)
  Sender: FDA-Public Use
  Company Number: None

PATIENT
  Age: 81 Year
  Sex: Male
  Weight: 86.18 kg

DRUGS (6)
  1. JUBLIA [Suspect]
     Active Substance: EFINACONAZOLE
     Indication: ONYCHOMYCOSIS
     Dates: start: 20150211, end: 20150804
  2. CARVEDILOL. [Concomitant]
     Active Substance: CARVEDILOL
  3. FINASTERIDE. [Concomitant]
     Active Substance: FINASTERIDE
  4. TAMSULOSIN [Concomitant]
     Active Substance: TAMSULOSIN
  5. TERTURNA [Concomitant]
  6. AMLODIPINE [Concomitant]
     Active Substance: AMLODIPINE BESYLATE

REACTIONS (5)
  - Application site reaction [None]
  - Application site discharge [None]
  - Application site inflammation [None]
  - Onychomycosis [None]
  - Condition aggravated [None]
